FAERS Safety Report 17121403 (Version 4)
Quarter: 2019Q4

REPORT INFORMATION
  Report Type: Report from Study
  Country: US (occurrence: US)
  Receive Date: 20191206
  Receipt Date: 20191220
  Transmission Date: 20200122
  Serious: Yes (Disabling, Other)
  Sender: FDA-Public Use
  Company Number: NVSC2019US061376

PATIENT
  Age: 78 Year
  Sex: Male

DRUGS (1)
  1. ENTRESTO [Suspect]
     Active Substance: SACUBITRIL\VALSARTAN
     Indication: PRODUCT USED FOR UNKNOWN INDICATION
     Dosage: UNK
     Route: 065
     Dates: start: 2018

REACTIONS (3)
  - Fall [Recovered/Resolved with Sequelae]
  - Facial bones fracture [Recovered/Resolved with Sequelae]
  - Concussion [Recovered/Resolved with Sequelae]

NARRATIVE: CASE EVENT DATE: 20191128
